FAERS Safety Report 11074259 (Version 1)
Quarter: 2015Q2

REPORT INFORMATION
  Report Type: Spontaneous
  Country: CH (occurrence: None)
  Receive Date: 20150427
  Receipt Date: 20150427
  Transmission Date: 20150821
  Serious: Yes (Death, Life-Threatening, Hospitalization, Other)
  Sender: FDA-Public Use
  Company Number: FK201501843

PATIENT
  Age: 62 Year
  Sex: Female

DRUGS (5)
  1. TACROLIMUS (TACROLIMUS) [Suspect]
     Active Substance: TACROLIMUS
     Indication: IMMUNOSUPPRESSION
     Dosage: 1 MG,  2 IN 1 D,  UNKNOWN
  2. MYCOPHENOLATE MOFETIL (MYCOPHENOLATE MOFETIL) [Suspect]
     Active Substance: MYCOPHENOLATE MOFETIL
     Indication: IMMUNOSUPPRESSION
     Dosage: 500 MG,  2 IN 1 D,  UNKNOWN
  3. AMPHOTERICIN B (AMPHOTERICIN B) [Suspect]
     Active Substance: AMPHOTERICIN B
     Indication: ANTIFUNGAL TREATMENT
  4. METHYLPREDNISOLONE (MANUFACTURER UNKNOWN) (METHYLPREDNISOLONE SODIUM SUCCINATE) (METHYLPREDNISOLONE SODIUM SUCCINATE) [Suspect]
     Active Substance: METHYLPREDNISOLONE
     Indication: IMMUNOSUPPRESSION
     Dosage: UNKNOWN
  5. POSACONAZOLE (POSACONAZOLE) [Concomitant]

REACTIONS (10)
  - Gastrointestinal haemorrhage [None]
  - Gastritis [None]
  - Renal failure [None]
  - Perforated ulcer [None]
  - Zygomycosis [None]
  - Acute kidney injury [None]
  - Cytomegalovirus infection [None]
  - Transplant rejection [None]
  - Shock haemorrhagic [None]
  - Bacterial infection [None]
